FAERS Safety Report 23391886 (Version 1)
Quarter: 2024Q1

REPORT INFORMATION
  Report Type: Spontaneous
  Country: US (occurrence: US)
  Receive Date: 20240111
  Receipt Date: 20240111
  Transmission Date: 20240410
  Serious: No
  Sender: FDA-Public Use
  Company Number: US-BEH-2024167201

PATIENT
  Age: 5 Year
  Sex: Female

DRUGS (2)
  1. HIZENTRA [Suspect]
     Active Substance: HUMAN IMMUNOGLOBULIN G
     Indication: Humoral immune defect
     Dosage: 3 GRAM, QW
     Route: 058
     Dates: start: 202206
  2. HIZENTRA [Suspect]
     Active Substance: HUMAN IMMUNOGLOBULIN G
     Dosage: UNK
     Route: 058
     Dates: start: 20231222

REACTIONS (4)
  - Urticaria [Not Recovered/Not Resolved]
  - Contusion [Unknown]
  - Vasculitis [Unknown]
  - Ear infection [Unknown]

NARRATIVE: CASE EVENT DATE: 20231201
